FAERS Safety Report 23983917 (Version 1)
Quarter: 2024Q2

REPORT INFORMATION
  Report Type: Spontaneous
  Country: US (occurrence: US)
  Receive Date: 20240618
  Receipt Date: 20240618
  Transmission Date: 20240715
  Serious: No
  Sender: FDA-Public Use
  Company Number: US-TEVA-VS-3207847

PATIENT
  Age: 74 Year
  Sex: Female

DRUGS (1)
  1. AUSTEDO [Suspect]
     Active Substance: DEUTETRABENAZINE
     Indication: Product used for unknown indication
     Dosage: PRESCRIBER LOWERED THE DOSE OF AUSTEDO TO 1 TABLET OF AUSTEDO 12 MG TWICE A DAY
     Route: 065

REACTIONS (1)
  - Fall [Recovered/Resolved]
